FAERS Safety Report 7001853-3 (Version None)
Quarter: 2010Q3

REPORT INFORMATION
  Report Type: 
  Country: None (occurrence: None)
  Receive Date: 20100920
  Receipt Date: 20100910
  Transmission Date: 20110219
  Serious: Yes (Other)
  Sender: FDA-Public Use
  Company Number: US-ABBOTT-10P-163-0670201-00

PATIENT
  Sex: Female
  Weight: 74.002 kg

DRUGS (7)
  1. HUMIRA [Suspect]
     Indication: RHEUMATOID ARTHRITIS
     Route: 058
     Dates: start: 20050101, end: 20100401
  2. HUMIRA [Suspect]
     Dates: start: 20100915
  3. VICODIN [Concomitant]
     Indication: RHEUMATOID ARTHRITIS
  4. SULFASALAZINE [Concomitant]
     Indication: RHEUMATOID ARTHRITIS
     Route: 048
     Dates: start: 20100401
  5. SULFASALAZINE [Concomitant]
     Dates: start: 20100915
  6. XANAX [Concomitant]
     Indication: ANXIETY
  7. NORCO [Concomitant]
     Indication: RHEUMATOID ARTHRITIS

REACTIONS (4)
  - ARTHRALGIA [None]
  - CHONDROPATHY [None]
  - INCISION SITE PAIN [None]
  - JOINT SWELLING [None]
